FAERS Safety Report 5293647-4 (Version None)
Quarter: 2007Q2

REPORT INFORMATION
  Report Type: 
  Country: None (occurrence: None)
  Receive Date: 20070411
  Receipt Date: 20070329
  Transmission Date: 20071010
  Serious: Yes (Other)
  Sender: FDA-Public Use
  Company Number: US-ELI_LILLY_AND_COMPANY-US200703006385

PATIENT
  Age: 75 Year
  Sex: Female

DRUGS (6)
  1. CYMBALTA [Suspect]
     Indication: DEPRESSION
     Dosage: 30 MG, DAILY (1/D)
     Dates: start: 20060101, end: 20070320
  2. CYMBALTA [Suspect]
     Dosage: 30 MG, DAILY (1/D)
     Dates: start: 20070327
  3. POTASSIUM ACETATE [Concomitant]
  4. VITAMINS [Concomitant]
  5. CALCIUM [Concomitant]
  6. CELEBREX [Concomitant]
     Dosage: UNK, 2/D

REACTIONS (5)
  - ABDOMINAL RIGIDITY [None]
  - CRYING [None]
  - ENDOMETRIAL CANCER [None]
  - FATIGUE [None]
  - HEADACHE [None]
